FAERS Safety Report 9289566 (Version 1)
Quarter: 2013Q2

REPORT INFORMATION
  Report Type: Spontaneous
  Country: US (occurrence: US)
  Receive Date: 20130515
  Receipt Date: 20130515
  Transmission Date: 20140414
  Serious: Yes (Other)
  Sender: FDA-Public Use
  Company Number: US-AMGEN-USASP2013033345

PATIENT
  Sex: 0

DRUGS (3)
  1. NEULASTA [Suspect]
     Indication: PRODUCT USED FOR UNKNOWN INDICATION
     Dosage: UNK
  2. CARBOPLATIN [Concomitant]
     Dosage: UNK
  3. ABRAXANE                           /01116001/ [Concomitant]
     Dosage: UNK

REACTIONS (1)
  - Neutrophil count decreased [Unknown]
